FAERS Safety Report 26060298 (Version 2)
Quarter: 2025Q4

REPORT INFORMATION
  Report Type: Spontaneous
  Country: US (occurrence: US)
  Receive Date: 20251118
  Receipt Date: 20251221
  Transmission Date: 20260117
  Serious: Yes (Hospitalization)
  Sender: CIPLA
  Company Number: US-CIPLA LTD.-2025US14316

PATIENT

DRUGS (2)
  1. LENALIDOMIDE [Suspect]
     Active Substance: LENALIDOMIDE
     Indication: Plasma cell myeloma
     Dosage: 10 MILLIGRAM, QD (TAKE 1 CAPSULE ONCE DAILY FOR 21 DAYS, 7 DAYS OFF) (STRENGTH: 10 MG)
     Route: 048
     Dates: start: 20250807
  2. LENALIDOMIDE [Suspect]
     Active Substance: LENALIDOMIDE
     Dosage: 15 MILLIGRAM, QD (TAKE 1 CAPSULE ONCE DAILY FOR 21 DAYS, 7 DAYS OFF ) (STRENGTH:15 MG)
     Route: 048
     Dates: start: 20250807

REACTIONS (2)
  - Confusional state [Not Recovered/Not Resolved]
  - Asthenia [Not Recovered/Not Resolved]

NARRATIVE: CASE EVENT DATE: 20250101
